FAERS Safety Report 7418888-9 (Version None)
Quarter: 2011Q2

REPORT INFORMATION
  Report Type: 
  Country: None (occurrence: None)
  Receive Date: 20110415
  Receipt Date: 20110411
  Transmission Date: 20111010
  Serious: No
  Sender: FDA-Public Use
  Company Number: US-PFIZER INC-2011079737

PATIENT
  Sex: Female
  Weight: 136 kg

DRUGS (4)
  1. CELEXA [Concomitant]
     Indication: DEPRESSION
     Dosage: 20 MG, 1X/DAY
  2. CELEBREX [Suspect]
     Indication: ARTHRITIS
     Dosage: UNK
     Route: 048
     Dates: end: 20110201
  3. ACTOS [Concomitant]
     Indication: DIABETES MELLITUS
     Dosage: 30 MG, 1X/DAY
  4. MODURETIC 5-50 [Concomitant]
     Indication: FLUID RETENTION
     Dosage: 5/50

REACTIONS (1)
  - GAIT DISTURBANCE [None]
